FAERS Safety Report 5167248-2 (Version None)
Quarter: 2006Q4

REPORT INFORMATION
  Report Type: 
  Country: None (occurrence: None)
  Receive Date: 20061207
  Receipt Date: 20061201
  Transmission Date: 20070319
  Serious: Yes (Death)
  Sender: FDA-Public Use
  Company Number: GB-ROXANE LABORATORIES, INC-2006-DE-06399GD

PATIENT

DRUGS (2)
  1. MORPHINE [Suspect]
     Indication: CANCER PAIN
     Route: 048
  2. MORPHINE [Suspect]
     Indication: PAIN IN EXTREMITY

REACTIONS (3)
  - DEATH [None]
  - DRUG INEFFECTIVE [None]
  - SOMNOLENCE [None]
